FAERS Safety Report 6931141-2 (Version None)
Quarter: 2010Q3

REPORT INFORMATION
  Report Type: 
  Country: None (occurrence: None)
  Receive Date: 20100818
  Receipt Date: 20100809
  Transmission Date: 20110219
  Serious: Yes (Death)
  Sender: FDA-Public Use
  Company Number: JP-ALLERGAN-1010500US

PATIENT
  Age: 13 Year
  Sex: Female
  Weight: 13.2 kg

DRUGS (15)
  1. BOTOX INJECTION 100 [Suspect]
     Indication: TORTICOLLIS
     Dosage: 60 UNITS, SINGLE
     Route: 030
     Dates: start: 20071208, end: 20071208
  2. BOTOX INJECTION 100 [Suspect]
     Dosage: 110 UNITS, SINGLE
     Route: 030
     Dates: start: 20080524, end: 20080524
  3. BOTOX INJECTION 100 [Suspect]
     Dosage: 110 UNITS, SINGLE
     Route: 030
     Dates: start: 20080824, end: 20080824
  4. BOTOX INJECTION 100 [Suspect]
     Dosage: 110 UNITS, SINGLE
     Route: 030
     Dates: start: 20080913, end: 20080913
  5. GASTER [Concomitant]
     Dosage: 0.1 DF, QD
     Route: 048
  6. GASMOTIN [Concomitant]
     Dosage: 0.5 DF, QD
     Route: 048
  7. EXCEGRAN [Concomitant]
     Dosage: 1 DF, QD
     Route: 048
  8. HORIZON [Concomitant]
     Dosage: 0.15 DF, QD
     Route: 048
  9. BENZALIN [Concomitant]
     Dosage: 0.3 DF, QD
     Route: 048
  10. MYOCALM [Concomitant]
     Dosage: 6 ML, QD
     Route: 048
  11. ALFAROL [Concomitant]
     Dosage: 0.5 DF, QD
     Route: 048
  12. MUCODYNE [Concomitant]
     Dosage: 0.9 DF, QD
     Route: 048
  13. MUCOSOLVAN:SYRUP [Concomitant]
     Dosage: 0.6 DF, QD
     Route: 048
  14. MEPTIN [Concomitant]
     Dosage: 0.7 DF, QD
     Route: 048
  15. TRICLORYL [Concomitant]
     Dosage: 7 ML, QD
     Route: 048

REACTIONS (1)
  - RESPIRATORY ARREST [None]
